FAERS Safety Report 18051557 (Version 2)
Quarter: 2020Q4

REPORT INFORMATION
  Report Type: Spontaneous
  Country: US (occurrence: US)
  Receive Date: 20200721
  Receipt Date: 20201014
  Transmission Date: 20210113
  Serious: Yes (Hospitalization, Other)
  Sender: FDA-Public Use
  Company Number: US-BAYER-2020-141394

PATIENT
  Age: 87 Year
  Sex: Male

DRUGS (11)
  1. COLECALCIFEROL [Concomitant]
     Active Substance: CHOLECALCIFEROL
  2. XTANDI [Suspect]
     Active Substance: ENZALUTAMIDE
     Indication: PROSTATE CANCER
     Dosage: 160 MG, QD
     Route: 048
     Dates: start: 20200115
  3. PANTOPRAZOLE [Concomitant]
     Active Substance: PANTOPRAZOLE
  4. BAYER LOW DOSE [Suspect]
     Active Substance: ASPIRIN
     Indication: PRODUCT USED FOR UNKNOWN INDICATION
  5. GABAPENTIN. [Concomitant]
     Active Substance: GABAPENTIN
  6. OLMESARTAN HCT AN [Concomitant]
     Active Substance: HYDROCHLOROTHIAZIDE\OLMESARTAN MEDOXOMIL
  7. VITAMIN D3 [Suspect]
     Active Substance: CHOLECALCIFEROL
  8. TIMOLOL. [Concomitant]
     Active Substance: TIMOLOL
  9. ELIQUIS [Concomitant]
     Active Substance: APIXABAN
     Indication: PRODUCT USED FOR UNKNOWN INDICATION
     Dosage: 1 DF, BID
  10. HYALGAN [Concomitant]
     Active Substance: HYALURONATE SODIUM
  11. OXYCODONE [Concomitant]
     Active Substance: OXYCODONE

REACTIONS (8)
  - Aortic stenosis [None]
  - Incontinence [None]
  - Radiation associated haemorrhage [None]
  - Urinary tract infection [Recovered/Resolved]
  - Urinary tract infection [Unknown]
  - Haemorrhage [None]
  - Haemorrhage [Unknown]
  - Prostatic specific antigen increased [Not Recovered/Not Resolved]

NARRATIVE: CASE EVENT DATE: 2018
